FAERS Safety Report 8327677 (Version 7)
Quarter: 2013Q1

REPORT INFORMATION
  Report Type: Report from Study
  Country: KR (occurrence: KR)
  Receive Date: 20120109
  Receipt Date: 20130311
  Transmission Date: 20140127
  Serious: Yes (Death, Hospitalization, Other)
  Sender: FDA-Public Use
  Company Number: KR-ABBOTT-12P-090-0889541-00

PATIENT
  Age: 36 Year
  Sex: Male
  Weight: 52 kg

DRUGS (8)
  1. KALETRA TABLETS [Suspect]
     Indication: HIV INFECTION
     Dates: start: 20101116, end: 20110313
  2. 3TC/AZT [Concomitant]
     Indication: ANTIRETROVIRAL THERAPY
     Dates: start: 20110210, end: 20110704
  3. VALCYTE [Concomitant]
     Indication: ANTIVIRAL PROPHYLAXIS
     Route: 048
     Dates: start: 20110113, end: 20110609
  4. GLAMIN [Concomitant]
     Indication: MEDICAL DIET
     Route: 042
     Dates: start: 20110215, end: 20110702
  5. CIMETIDINE [Concomitant]
     Indication: PROPHYLAXIS
     Dosage: 200MG/2ML
     Route: 042
     Dates: start: 20110215, end: 20110702
  6. CIMETIDINE [Concomitant]
     Indication: GASTROINTESTINAL DISORDER
  7. ABACAVIR [Concomitant]
     Indication: HIV INFECTION
     Dosage: DAILY
     Dates: start: 20100628, end: 20110704
  8. LAMIVUDINE [Concomitant]
     Indication: HIV INFECTION
     Dosage: DAILY
     Dates: start: 20110628, end: 20110704

REACTIONS (7)
  - Device related infection [Fatal]
  - Progressive multifocal leukoencephalopathy [Fatal]
  - Pyrexia [Fatal]
  - Pneumonia [Fatal]
  - Septic shock [Fatal]
  - Malnutrition [Fatal]
  - Encephalopathy [Recovered/Resolved]
